FAERS Safety Report 5223884-6 (Version None)
Quarter: 2007Q1

REPORT INFORMATION
  Report Type: 
  Country: None (occurrence: None)
  Receive Date: 20070130
  Receipt Date: 20070126
  Transmission Date: 20070707
  Serious: Yes (Other)
  Sender: FDA-Public Use
  Company Number: JP-BRISTOL-MYERS SQUIBB COMPANY-13651294

PATIENT
  Age: 37 Year
  Sex: Female

DRUGS (16)
  1. PACLITAXEL [Suspect]
     Indication: BREAST CANCER
     Route: 042
     Dates: start: 20040915, end: 20041221
  2. DOXORUBICIN HCL [Suspect]
     Indication: BREAST CANCER
     Dates: start: 20030201
  3. DOCETAXEL [Suspect]
     Indication: BREAST CANCER
     Route: 042
     Dates: start: 20030223, end: 20040729
  4. TRASTUZUMAB [Suspect]
     Indication: BREAST CANCER
     Dates: start: 20030801, end: 20040801
  5. CHLOR-TRIMETON [Concomitant]
     Route: 042
     Dates: start: 20040915, end: 20041221
  6. GASTER [Concomitant]
     Route: 042
     Dates: start: 20040915, end: 20041221
  7. DECADRON [Concomitant]
     Route: 042
     Dates: start: 20040915, end: 20041221
  8. SELBEX [Concomitant]
     Route: 048
     Dates: start: 20030415
  9. NAUZELIN [Concomitant]
     Route: 048
     Dates: start: 20030415
  10. GASTER D [Concomitant]
     Route: 048
     Dates: start: 20030415
  11. CORSONE [Concomitant]
     Route: 048
     Dates: start: 20030415
  12. KYTRIL [Concomitant]
     Route: 048
     Dates: start: 20030415
  13. FERROMIA [Concomitant]
     Route: 048
     Dates: start: 20030814
  14. LASIX [Concomitant]
     Route: 048
     Dates: start: 20030415
  15. ALDACTONE [Concomitant]
     Route: 048
     Dates: start: 20030415
  16. NOVAMIN [Concomitant]
     Route: 048
     Dates: start: 20031016

REACTIONS (3)
  - OEDEMA PERIPHERAL [None]
  - PIGMENTATION DISORDER [None]
  - SCLERODERMA [None]
